FAERS Safety Report 23514662 (Version 1)
Quarter: 2024Q1

REPORT INFORMATION
  Report Type: Spontaneous
  Country: US (occurrence: US)
  Receive Date: 20240212
  Receipt Date: 20240212
  Transmission Date: 20240410
  Serious: Yes (Other)
  Sender: FDA-Public Use
  Company Number: US-ANIPHARMA-2024-US-007120

PATIENT
  Sex: 0

DRUGS (2)
  1. ARIMIDEX [Suspect]
     Active Substance: ANASTROZOLE
     Indication: Breast cancer metastatic
     Route: 048
     Dates: start: 202203
  2. IBRANCE [Suspect]
     Active Substance: PALBOCICLIB
     Dosage: 100MG DAILY, 2 WEEKS ON AND 2 WEEKS OFF
     Route: 048
     Dates: start: 202203

REACTIONS (2)
  - Gastric ulcer [Unknown]
  - Helicobacter infection [Recovered/Resolved]
